FAERS Safety Report 5277739-1 (Version None)
Quarter: 2007Q1

REPORT INFORMATION
  Report Type: 
  Country: None (occurrence: None)
  Receive Date: 20070321
  Receipt Date: 20070307
  Transmission Date: 20070707
  Serious: No
  Sender: FDA-Public Use
  Company Number: 2007-153556-NL

PATIENT
  Age: 38 Year
  Sex: Female

DRUGS (2)
  1. ETONOGESTREL (BATCH #: 599375/619103) [Suspect]
     Dosage: DF NI
     Dates: end: 20050601
  2. ETONOGESTREL (BATCH #: 599375/619103) [Suspect]
     Dosage: DF NI
     Dates: start: 20050601

REACTIONS (3)
  - BREAST CANCER FEMALE [None]
  - LABORATORY TEST ABNORMAL [None]
  - METASTASES TO LYMPH NODES [None]
